FAERS Safety Report 8073517-9 (Version None)
Quarter: 2011Q4

REPORT INFORMATION
  Report Type: 
  Country: None (occurrence: None)
  Receive Date: 20111221
  Receipt Date: 20110808
  Transmission Date: 20120403
  Serious: Yes (Hospitalization)
  Sender: FDA-Public Use
  Company Number: PHHY2011US27285

PATIENT
  Age: 73 Year
  Sex: Male

DRUGS (2)
  1. EXJADE [Suspect]
     Indication: LYMPHATIC DISORDER
     Dosage: 1500 MG, QD, ORAL
     Route: 048
  2. EXJADE [Suspect]
     Indication: HAEMATOPOIETIC NEOPLASM
     Dosage: 1500 MG, QD, ORAL
     Route: 048

REACTIONS (8)
  - ABNORMAL FAECES [None]
  - HEADACHE [None]
  - PRURITUS [None]
  - JAUNDICE [None]
  - SICKLE CELL ANAEMIA WITH CRISIS [None]
  - CHROMATURIA [None]
  - RASH [None]
  - NAUSEA [None]
